FAERS Safety Report 21146831 (Version 1)
Quarter: 2022Q3

REPORT INFORMATION
  Report Type: Spontaneous
  Country: US (occurrence: None)
  Receive Date: 20220728
  Receipt Date: 20220728
  Transmission Date: 20221027
  Serious: Yes (Death)
  Sender: FDA-Public Use
  Company Number: None

PATIENT
  Sex: Male

DRUGS (6)
  1. ESBRIET [Suspect]
     Active Substance: PIRFENIDONE
     Indication: Idiopathic pulmonary fibrosis
     Dosage: RX2: TAKE 3 TABLETS BY MOUTH THREE TIMES DAILY WITH MEALS (AFTER TITRATION COMPLETE)
     Route: 048
     Dates: start: 20211124, end: 202207
  2. IRON COMPLEX [Concomitant]
  3. MAGNESIUM-OX [Concomitant]
  4. OMEGA-3 ACIDS [Concomitant]
     Active Substance: OMEGA-3 FATTY ACIDS
  5. ONE DAILY MV TAB/IRON [Concomitant]
  6. VITAMIN D [Concomitant]
     Active Substance: VITAMIN D NOS

REACTIONS (1)
  - Death [None]
